FAERS Safety Report 8431205-0 (Version None)
Quarter: 2012Q2

REPORT INFORMATION
  Report Type: 
  Country: None (occurrence: None)
  Receive Date: 20120612
  Receipt Date: 20120608
  Transmission Date: 20120825
  Serious: Yes (Hospitalization)
  Sender: FDA-Public Use
  Company Number: PHHY2012GB049325

PATIENT
  Age: 41 Year
  Sex: Female

DRUGS (5)
  1. FERROUS SULFATE TAB [Concomitant]
  2. COTRIM [Suspect]
     Indication: PNEUMOCYSTIS JIROVECI PNEUMONIA
     Route: 042
  3. CLARITHROMYCIN [Concomitant]
  4. CEFTRIAXONE [Suspect]
     Route: 042
  5. AMOXICILLIN [Concomitant]

REACTIONS (3)
  - ACUTE PSYCHOSIS [None]
  - CONFUSIONAL STATE [None]
  - AGGRESSION [None]
